FAERS Safety Report 23048711 (Version 3)
Quarter: 2023Q4

REPORT INFORMATION
  Report Type: Report from Study
  Country: CA (occurrence: CA)
  Receive Date: 20231010
  Receipt Date: 20231201
  Transmission Date: 20240109
  Serious: Yes (Hospitalization, Other)
  Sender: FDA-Public Use
  Company Number: CA-002147023-NVSC2023CA167435

PATIENT
  Age: 49 Year
  Sex: Female

DRUGS (4)
  1. TAFINLAR [Suspect]
     Active Substance: DABRAFENIB MESYLATE
     Indication: Metastatic malignant melanoma
     Dosage: 150 MG, BID
     Route: 048
     Dates: start: 20230630, end: 20230916
  2. TAFINLAR [Suspect]
     Active Substance: DABRAFENIB MESYLATE
     Dosage: 1 DOSAGE FORM, BID (1 PILL TWICE/DAY).
     Route: 065
     Dates: start: 20231005
  3. MEKINIST [Suspect]
     Active Substance: TRAMETINIB DIMETHYL SULFOXIDE
     Indication: Metastatic malignant melanoma
     Dosage: 2 MG, QD
     Route: 048
     Dates: start: 20230630, end: 20230916
  4. MEKINIST [Suspect]
     Active Substance: TRAMETINIB DIMETHYL SULFOXIDE
     Dosage: 2 MG, QD (3RD DAY SHE ADDED MEKINIST ON FULL DOSE (2MG DAILY))
     Route: 065

REACTIONS (17)
  - Pyrexia [Unknown]
  - Nausea [Unknown]
  - Diarrhoea [Unknown]
  - Vomiting [Unknown]
  - Pain [Unknown]
  - Pyrexia [Recovered/Resolved]
  - Septic shock [Unknown]
  - Hot flush [Recovered/Resolved]
  - Dry mouth [Unknown]
  - Asthenia [Unknown]
  - Accidental overdose [Unknown]
  - Rash [Recovering/Resolving]
  - Fatigue [Unknown]
  - Decreased appetite [Unknown]
  - Flushing [Unknown]
  - Malaise [Unknown]
  - Dizziness [Unknown]

NARRATIVE: CASE EVENT DATE: 20230913
